FAERS Safety Report 10098628 (Version 2)
Quarter: 2015Q1

REPORT INFORMATION
  Report Type: Spontaneous
  Country: US (occurrence: US)
  Receive Date: 20140423
  Receipt Date: 20150218
  Transmission Date: 20150720
  Serious: Yes (Death)
  Sender: FDA-Public Use
  Company Number: US-PFIZER INC-2014110489

PATIENT
  Age: 11 Week
  Sex: Female

DRUGS (1)
  1. LYRICA [Suspect]
     Active Substance: PREGABALIN
     Indication: FIBROMYALGIA
     Dosage: 50 MG, UNK
     Route: 064

REACTIONS (2)
  - Death [Fatal]
  - Maternal exposure during pregnancy [Fatal]

NARRATIVE: CASE EVENT DATE: 20130106
